FAERS Safety Report 5847385-7 (Version None)
Quarter: 2008Q3

REPORT INFORMATION
  Report Type: 
  Country: None (occurrence: None)
  Receive Date: 20080813
  Receipt Date: 20080804
  Transmission Date: 20090109
  Serious: Yes (Hospitalization, Other)
  Sender: FDA-Public Use
  Company Number: ENT2008-0115

PATIENT
  Age: 59 Year
  Sex: Female

DRUGS (6)
  1. COMTAN [Suspect]
     Indication: DRUG EFFECT DECREASED
     Dosage: 600MG DIVIDED INTO 6 TIMES DAILY; ORAL; 400 MG, DIVIDED INTO 4 TIMES DAILY, ORAL
     Route: 048
     Dates: start: 20080618, end: 20080624
  2. COMTAN [Suspect]
     Indication: DRUG EFFECT DECREASED
     Dosage: 600MG DIVIDED INTO 6 TIMES DAILY; ORAL; 400 MG, DIVIDED INTO 4 TIMES DAILY, ORAL
     Route: 048
     Dates: start: 20080625, end: 20080702
  3. EC DOPARL [Concomitant]
  4. FP (SELEGILINE) [Concomitant]
  5. DOPS [Concomitant]
  6. CARBIDOPA AND LEVODOPA [Concomitant]

REACTIONS (11)
  - ALANINE AMINOTRANSFERASE INCREASED [None]
  - ASPARTATE AMINOTRANSFERASE INCREASED [None]
  - BLOOD ALKALINE PHOSPHATASE INCREASED [None]
  - BLOOD CREATINE PHOSPHOKINASE INCREASED [None]
  - BLOOD LACTATE DEHYDROGENASE INCREASED [None]
  - DYSKINESIA [None]
  - HALLUCINATION, AUDITORY [None]
  - HEPATIC FUNCTION ABNORMAL [None]
  - NAUSEA [None]
  - POTENTIATING DRUG INTERACTION [None]
  - PROTEIN URINE PRESENT [None]
